FAERS Safety Report 5331730-5 (Version None)
Quarter: 2007Q2

REPORT INFORMATION
  Report Type: 
  Country: None (occurrence: None)
  Receive Date: 20070517
  Receipt Date: 20070413
  Transmission Date: 20071010
  Serious: Yes (Hospitalization)
  Sender: FDA-Public Use
  Company Number: TKT01200700196

PATIENT
  Age: 10 Year
  Sex: Male
  Weight: 28 kg

DRUGS (1)
  1. IDURSULFASE (IDURSULFASE) (0.5 MILLIGRAM(S)/ KILOGRAM, CONCENTRATE FOR [Suspect]
     Indication: MUCOPOLYSACCHARIDOSIS II
     Dosage: 0.5 MG/KG, 1 IN 1 WK, INTRAVENOUS DRIP
     Route: 041
     Dates: start: 20061205

REACTIONS (1)
  - PNEUMONIA ASPIRATION [None]
